FAERS Safety Report 8340485-1 (Version None)
Quarter: 2012Q2

REPORT INFORMATION
  Report Type: 
  Country: None (occurrence: None)
  Receive Date: 20120507
  Receipt Date: 20120426
  Transmission Date: 20120825
  Serious: Yes (Other)
  Sender: FDA-Public Use
  Company Number: US-SANOFI-AVENTIS-2012SA029830

PATIENT
  Age: 45 Year
  Sex: Female
  Weight: 73 kg

DRUGS (4)
  1. PLAVIX [Suspect]
     Route: 048
     Dates: start: 20110101
  2. PLAVIX [Suspect]
     Indication: STENT PLACEMENT
     Route: 048
     Dates: start: 20050101, end: 20110101
  3. PLAVIX [Suspect]
     Route: 048
     Dates: start: 20050101, end: 20110101
  4. PLAVIX [Suspect]
     Route: 048
     Dates: start: 20110101

REACTIONS (2)
  - TOOTH DISORDER [None]
  - FOOT DEFORMITY [None]
